FAERS Safety Report 14118847 (Version 2)
Quarter: 2017Q4

REPORT INFORMATION
  Report Type: Spontaneous
  Country: FR (occurrence: FR)
  Receive Date: 20171024
  Receipt Date: 20171218
  Transmission Date: 20180321
  Serious: Yes (Hospitalization)
  Sender: FDA-Public Use
  Company Number: FR-ACTELION-A-CH2017-161101

PATIENT
  Sex: Female

DRUGS (3)
  1. UPTRAVI [Suspect]
     Active Substance: SELEXIPAG
     Indication: PRODUCT USED FOR UNKNOWN INDICATION
     Dosage: 1000 ?G, BID
     Route: 048
  2. UPTRAVI [Suspect]
     Active Substance: SELEXIPAG
     Dosage: UNK
     Route: 048
     Dates: start: 201606
  3. UPTRAVI [Suspect]
     Active Substance: SELEXIPAG
     Dosage: 800 ?G, BID
     Route: 048

REACTIONS (6)
  - Palpitations [Unknown]
  - Arrhythmia [Unknown]
  - Pleural effusion [Unknown]
  - Cardiac failure [Unknown]
  - Oedema peripheral [Unknown]
  - Venoocclusive disease [Unknown]

NARRATIVE: CASE EVENT DATE: 2017
